FAERS Safety Report 7078590-2 (Version None)
Quarter: 2010Q4

REPORT INFORMATION
  Report Type: 
  Country: None (occurrence: None)
  Receive Date: 20101101
  Receipt Date: 20101101
  Transmission Date: 20110411
  Serious: No
  Sender: FDA-Public Use
  Company Number: None

PATIENT
  Sex: Male
  Weight: 108.8633 kg

DRUGS (1)
  1. CHLORHEXIDINE GLUCONATE [Suspect]
     Indication: SURGERY
     Dosage: AT SURGERY

REACTIONS (3)
  - BLISTER [None]
  - PRURITUS [None]
  - SCAR [None]
